FAERS Safety Report 4392444-1 (Version None)
Quarter: 2004Q3

REPORT INFORMATION
  Report Type: 
  Country: None (occurrence: None)
  Receive Date: 20040702
  Receipt Date: 20040625
  Transmission Date: 20050211
  Serious: Yes (Other)
  Sender: FDA-Public Use
  Company Number: 2004-02837

PATIENT
  Age: 47 Year
  Sex: Male

DRUGS (6)
  1. TRAMADOL HCL [Suspect]
     Indication: DISEASE RECURRENCE
     Dosage: 300-400 MG, DAILY TAPER, ORAL
     Route: 048
     Dates: start: 20040103, end: 20040301
  2. TRAMADOL HCL [Suspect]
     Indication: PAIN
     Dosage: 300-400 MG, DAILY TAPER, ORAL
     Route: 048
     Dates: start: 20040103, end: 20040301
  3. MIRTAZAPINE [Suspect]
     Indication: DISEASE RECURRENCE
     Dosage: 1 TABLET, DAILY, ORAL
     Route: 048
  4. MIRTAZAPINE [Suspect]
     Indication: MAJOR DEPRESSION
     Dosage: 1 TABLET, DAILY, ORAL
     Route: 048
  5. VENLAFAXINE HCL [Suspect]
     Indication: DISEASE RECURRENCE
     Dosage: 300 MG, DAILY, ORAL
     Route: 048
  6. VENLAFAXINE HCL [Suspect]
     Indication: MAJOR DEPRESSION
     Dosage: 300 MG, DAILY, ORAL
     Route: 048

REACTIONS (2)
  - DRUG INTERACTION POTENTIATION [None]
  - SEROTONIN SYNDROME [None]
